FAERS Safety Report 5040721-3 (Version None)
Quarter: 2006Q3

REPORT INFORMATION
  Report Type: 
  Country: None (occurrence: None)
  Receive Date: 20060703
  Receipt Date: 20060424
  Transmission Date: 20061208
  Serious: Yes (Other)
  Sender: FDA-Public Use
  Company Number: PHFR2006GB01535

PATIENT
  Sex: Female

DRUGS (1)
  1. SALAGEN [Suspect]
     Dosage: UNK, UNK
     Route: 065

REACTIONS (2)
  - BURNING SENSATION [None]
  - NEUROPATHY PERIPHERAL [None]
